FAERS Safety Report 25718270 (Version 1)
Quarter: 2025Q3

REPORT INFORMATION
  Report Type: Report from Study
  Country: US (occurrence: US)
  Receive Date: 20250823
  Receipt Date: 20250823
  Transmission Date: 20251020
  Serious: Yes (Other)
  Sender: ALEXION PHARMACEUTICALS
  Company Number: US-AstraZeneca-CH-00933032A

PATIENT
  Age: 79 Year
  Sex: Male
  Weight: 73.11 kg

DRUGS (9)
  1. ACALABRUTINIB [Suspect]
     Active Substance: ACALABRUTINIB
     Indication: Chronic lymphocytic leukaemia
  2. FERROUS SULFATE [Concomitant]
     Active Substance: FERROUS SULFATE
  3. PREVIDENT [Concomitant]
     Active Substance: SODIUM FLUORIDE
  4. CARBIDOPA [Concomitant]
     Active Substance: CARBIDOPA
  5. CARBIDOPA\LEVODOPA [Concomitant]
     Active Substance: CARBIDOPA\LEVODOPA
  6. TAMSULOSIN [Concomitant]
     Active Substance: TAMSULOSIN
  7. MELATONIN [Concomitant]
     Active Substance: MELATONIN
  8. LUPRON DEPOT-PED [Concomitant]
     Active Substance: LEUPROLIDE ACETATE
  9. TRIAMCINOLONE [Concomitant]
     Active Substance: TRIAMCINOLONE

REACTIONS (2)
  - Parkinson^s disease [Unknown]
  - Fatigue [Unknown]
